FAERS Safety Report 6306034-4 (Version None)
Quarter: 2009Q3

REPORT INFORMATION
  Report Type: 
  Country: None (occurrence: None)
  Receive Date: 20090810
  Receipt Date: 20090729
  Transmission Date: 20100115
  Serious: Yes (Hospitalization)
  Sender: FDA-Public Use
  Company Number: 2009AL000595

PATIENT
  Age: 76 Year
  Sex: Female
  Weight: 71.2147 kg

DRUGS (15)
  1. DIGOXIN [Suspect]
     Dosage: 0.125MG, DAILY, PO
     Route: 048
  2. ASPIRIN [Concomitant]
  3. CALTRATE [Concomitant]
  4. CENTRUM SILVER [Concomitant]
  5. DARVOCET [Concomitant]
  6. ENALAPRIL MALEATE [Concomitant]
  7. NORVASC [Concomitant]
  8. COUMADIN [Concomitant]
  9. IRON [Concomitant]
  10. LOVENOX [Concomitant]
  11. PLAVIX [Concomitant]
  12. PRILOSEC [Concomitant]
  13. PREVACID [Concomitant]
  14. NITROGLYCERIN [Concomitant]
  15. AMITIZA [Concomitant]

REACTIONS (13)
  - ACTIVATED PARTIAL THROMBOPLASTIN TIME PROLONGED [None]
  - ACTIVITIES OF DAILY LIVING IMPAIRED [None]
  - ANHEDONIA [None]
  - CONSTIPATION [None]
  - ECONOMIC PROBLEM [None]
  - EMOTIONAL DISTRESS [None]
  - FAMILY STRESS [None]
  - MULTIPLE INJURIES [None]
  - NAUSEA [None]
  - PAIN [None]
  - RENAL FAILURE ACUTE [None]
  - SOCIAL PROBLEM [None]
  - VOMITING [None]
